FAERS Safety Report 19045648 (Version 1)
Quarter: 2021Q1

REPORT INFORMATION
  Report Type: Spontaneous
  Country: US (occurrence: US)
  Receive Date: 20210323
  Receipt Date: 20210323
  Transmission Date: 20210420
  Serious: Yes (Hospitalization)
  Sender: FDA-Public Use
  Company Number: None

PATIENT
  Age: 8 Year
  Sex: Female

DRUGS (2)
  1. NORDITROPIN [Suspect]
     Active Substance: SOMATROPIN
     Indication: BLOOD GROWTH HORMONE
     Route: 058
     Dates: start: 20191106
  2. NONE LISTED [Concomitant]

REACTIONS (4)
  - Coma [None]
  - Cerebrovascular accident [None]
  - Respiratory arrest [None]
  - Myocardial infarction [None]
